FAERS Safety Report 17303469 (Version 1)
Quarter: 2020Q1

REPORT INFORMATION
  Report Type: Spontaneous
  Country: DE (occurrence: DE)
  Receive Date: 20200122
  Receipt Date: 20200122
  Transmission Date: 20200409
  Serious: Yes (Other)
  Sender: FDA-Public Use
  Company Number: DE-SEATTLE GENETICS-2020SGN00166

PATIENT
  Age: 52 Year
  Sex: Male

DRUGS (1)
  1. ADCETRIS [Suspect]
     Active Substance: BRENTUXIMAB VEDOTIN
     Indication: DIFFUSE LARGE B-CELL LYMPHOMA
     Dosage: 1.8 MG/KG, QMONTH
     Route: 042
     Dates: start: 201610, end: 201711

REACTIONS (3)
  - Post transplant lymphoproliferative disorder [Recovered/Resolved]
  - Peripheral sensory neuropathy [Unknown]
  - Off label use [Unknown]
